FAERS Safety Report 6754324-3 (Version None)
Quarter: 2010Q2

REPORT INFORMATION
  Report Type: 
  Country: None (occurrence: None)
  Receive Date: 20100601
  Receipt Date: 20100520
  Transmission Date: 20101027
  Serious: Yes (Hospitalization)
  Sender: FDA-Public Use
  Company Number: 7005872

PATIENT
  Age: 41 Year
  Sex: Female

DRUGS (3)
  1. REBIF [Suspect]
     Dosage: 22 MC, 3 IN 1 WK, SUBCUTANEOUS
     Route: 058
     Dates: start: 20061004
  2. VANLAFAXINE (VENLAFAXINE)` [Concomitant]
  3. ROHYPNOL (FLANITRAYPAM) (FLUNITRAZEPAM) [Concomitant]

REACTIONS (1)
  - DYSARTHRIA [None]
